FAERS Safety Report 19174949 (Version 1)
Quarter: 2021Q2

REPORT INFORMATION
  Report Type: Spontaneous
  Country: JP (occurrence: JP)
  Receive Date: 20210423
  Receipt Date: 20210423
  Transmission Date: 20210717
  Serious: Yes (Death, Hospitalization)
  Sender: FDA-Public Use
  Company Number: JP-BAYER-2021-129682

PATIENT
  Age: 68 Year
  Sex: Male

DRUGS (2)
  1. XOFIGO [Suspect]
     Active Substance: RADIUM RA-223 DICHLORIDE
  2. CORTICOSTEROID NOS [Suspect]
     Active Substance: CORTICOSTEROID NOS

REACTIONS (3)
  - Bone sequestrum [Fatal]
  - Osteonecrosis of jaw [Fatal]
  - Bile duct cancer [Fatal]
